FAERS Safety Report 10921411 (Version 1)
Quarter: 2015Q1

REPORT INFORMATION
  Report Type: Spontaneous
  Country: US (occurrence: None)
  Receive Date: 20150312
  Receipt Date: 20150312
  Transmission Date: 20150721
  Serious: No
  Sender: FDA-Public Use
  Company Number: US-LHC-2015029

PATIENT
  Age: 60 Year
  Sex: Female

DRUGS (1)
  1. CARBON DIOXIDE. [Suspect]
     Active Substance: CARBON DIOXIDE
     Indication: SURGERY
     Dosage: INSUFFLATION

REACTIONS (1)
  - Ear haemorrhage [None]
